FAERS Safety Report 15089293 (Version 1)
Quarter: 2018Q2

REPORT INFORMATION
  Report Type: Spontaneous
  Country: US (occurrence: US)
  Receive Date: 20180629
  Receipt Date: 20180629
  Transmission Date: 20180711
  Serious: No
  Sender: FDA-Public Use
  Company Number: US-EGALET US INC-US-2017EGA000687

PATIENT

DRUGS (1)
  1. SPRIX [Suspect]
     Active Substance: KETOROLAC TROMETHAMINE
     Indication: ANALGESIC THERAPY
     Dosage: 1 EN Q6-8 H PRN
     Route: 045
     Dates: start: 20170711

REACTIONS (2)
  - Sneezing [Unknown]
  - Nasal discomfort [Unknown]

NARRATIVE: CASE EVENT DATE: 20170711
